FAERS Safety Report 6442074-2 (Version None)
Quarter: 2009Q4

REPORT INFORMATION
  Report Type: 
  Country: None (occurrence: None)
  Receive Date: 20091116
  Receipt Date: 20091103
  Transmission Date: 20100525
  Serious: Yes (Hospitalization, Other)
  Sender: FDA-Public Use
  Company Number: PHHY2009GB35468

PATIENT
  Age: 26 Year
  Sex: Male

DRUGS (7)
  1. TEGRETOL [Suspect]
     Dosage: UNK
     Dates: end: 20090301
  2. DULCOLAX [Suspect]
     Indication: CONSTIPATION
     Dosage: UNK
     Route: 054
  3. BACLOFEN [Concomitant]
  4. LAMOTRIGINE [Concomitant]
     Indication: EPILEPSY
     Dosage: UNK
     Route: 048
  5. NULYTELY [Concomitant]
     Indication: CONSTIPATION
     Dosage: UNK
     Route: 048
  6. OMEPRAZOLE [Concomitant]
     Indication: GASTROINTESTINAL HAEMORRHAGE
     Dosage: UNK
     Route: 048
  7. FERROUS SULFATE TAB [Concomitant]
     Indication: ANAEMIA
     Dosage: UNK
     Route: 048

REACTIONS (6)
  - BONE MARROW FAILURE [None]
  - GASTROINTESTINAL HAEMORRHAGE [None]
  - INTENTIONAL DRUG MISUSE [None]
  - MELAENA [None]
  - PANCYTOPENIA [None]
  - WHITE BLOOD CELL COUNT DECREASED [None]
